FAERS Safety Report 5168176-9 (Version None)
Quarter: 2006Q4

REPORT INFORMATION
  Report Type: 
  Country: None (occurrence: None)
  Receive Date: 20061130
  Receipt Date: 20040213
  Transmission Date: 20070319
  Serious: Yes (Other)
  Sender: FDA-Public Use
  Company Number: 23100336

PATIENT
  Age: 57 Year
  Sex: Female

DRUGS (10)
  1. ARGATROBAN [Suspect]
     Indication: HEPARIN-INDUCED THROMBOCYTOPENIA
     Dosage: 13 ML CONT IV
     Route: 042
     Dates: start: 20040125
  2. NEURONTIN [Concomitant]
  3. GLUCOVANCE [Concomitant]
  4. LISINOPRIL [Concomitant]
  5. LOPRESSOR [Concomitant]
  6. PROTONIX [Concomitant]
  7. PREDNISONE TAB [Concomitant]
  8. SUCRALFATE [Concomitant]
  9. COUMADIN [Concomitant]
  10. EPOGEN [Concomitant]

REACTIONS (4)
  - ACTIVATED PARTIAL THROMBOPLASTIN TIME PROLONGED [None]
  - DEEP VEIN THROMBOSIS [None]
  - DRUG INEFFECTIVE [None]
  - PLATELET COUNT DECREASED [None]
